FAERS Safety Report 14851105 (Version 2)
Quarter: 2018Q3

REPORT INFORMATION
  Report Type: Spontaneous
  Country: HK (occurrence: HK)
  Receive Date: 20180507
  Receipt Date: 20180820
  Transmission Date: 20181010
  Serious: Yes (Hospitalization, Other)
  Sender: FDA-Public Use
  Company Number: HK-ROCHE-1938191

PATIENT
  Weight: 42 kg

DRUGS (1)
  1. TECENTRIQ [Suspect]
     Active Substance: ATEZOLIZUMAB
     Indication: LUNG NEOPLASM MALIGNANT
     Route: 065

REACTIONS (6)
  - Delirium [Unknown]
  - Confusional state [Unknown]
  - Blood pressure increased [Unknown]
  - Cytokine abnormal [Unknown]
  - Off label use [Unknown]
  - Eye movement disorder [Unknown]
